FAERS Safety Report 8408725-8 (Version None)
Quarter: 2012Q2

REPORT INFORMATION
  Report Type: 
  Country: None (occurrence: None)
  Receive Date: 20120604
  Receipt Date: 20120525
  Transmission Date: 20120825
  Serious: Yes (Other)
  Sender: FDA-Public Use
  Company Number: US-CELGENEUS-163-21880-12053210

PATIENT
  Sex: Male
  Weight: 120 kg

DRUGS (24)
  1. THALIDOMIDE [Suspect]
     Dosage: 50 MILLIGRAM
     Route: 048
  2. ACYCLOVIR [Concomitant]
     Dosage: 400 MILLIGRAM
     Route: 048
  3. COUMADIN [Concomitant]
     Dosage: 10 MILLIGRAM
     Route: 048
  4. CARFILZOMIB [Concomitant]
     Indication: MULTIPLE MYELOMA
     Route: 041
  5. VORINOSTAT [Concomitant]
     Indication: MULTIPLE MYELOMA
     Dosage: 100 MILLIGRAM
     Route: 065
  6. AVODART [Concomitant]
     Dosage: .5 MILLIGRAM
     Route: 065
  7. SIMVASTATIN [Concomitant]
     Dosage: 20 MILLIGRAM
     Route: 048
  8. CARFILZOMIB [Concomitant]
     Route: 041
  9. ZOMETA [Concomitant]
     Dosage: 4MG/5ML
     Route: 041
  10. DEXAMETHASONE [Concomitant]
     Indication: MULTIPLE MYELOMA
     Dosage: 4 MILLIGRAM
     Route: 065
  11. LASIX [Concomitant]
     Dosage: 40 MILLIGRAM
     Route: 048
  12. PROZAC [Concomitant]
     Dosage: 20 MILLIGRAM
     Route: 065
  13. REVLIMID [Suspect]
     Indication: MULTIPLE MYELOMA
     Route: 048
     Dates: end: 20110601
  14. REVLIMID [Suspect]
     Dosage: 10 MILLIGRAM
     Route: 048
  15. THALIDOMIDE [Suspect]
     Indication: MULTIPLE MYELOMA
     Route: 048
  16. CARFILZOMIB [Concomitant]
     Route: 041
  17. CARFILZOMIB [Concomitant]
     Route: 041
  18. ZOLINZA [Concomitant]
     Dosage: 100 MILLIGRAM
     Route: 048
  19. BACTRIM DS [Concomitant]
     Dosage: 800-160MG
     Route: 048
  20. RESTASIS [Concomitant]
     Dosage: .05 PERCENT
     Route: 065
  21. DIGOXIN [Concomitant]
     Dosage: .125 MILLIGRAM
     Route: 048
  22. CARFILZOMIB [Concomitant]
     Route: 041
  23. MULTIVITAMIN [Concomitant]
     Route: 065
  24. KLOR-CON [Concomitant]
     Dosage: 10 MILLIEQUIVALENTS
     Route: 065

REACTIONS (1)
  - PROSTATE CANCER METASTATIC [None]
